FAERS Safety Report 20308020 (Version 5)
Quarter: 2022Q1

REPORT INFORMATION
  Report Type: Report from Study
  Country: US (occurrence: US)
  Receive Date: 20220107
  Receipt Date: 20220210
  Transmission Date: 20220423
  Serious: Yes (Other)
  Sender: FDA-Public Use
  Company Number: US-NOVARTISTESTPH-NVSC2022US002082

PATIENT
  Age: 50 Year
  Sex: Female

DRUGS (1)
  1. KESIMPTA [Suspect]
     Active Substance: OFATUMUMAB
     Indication: Product used for unknown indication
     Dosage: 20 MG (BENEATH THE SKIN,USUALLY VIA INJECTION)
     Route: 058
     Dates: start: 20211203

REACTIONS (9)
  - Cellulitis [Unknown]
  - Abscess [Unknown]
  - Influenza like illness [Unknown]
  - Headache [Unknown]
  - Pain [Unknown]
  - Oropharyngeal pain [Unknown]
  - Night sweats [Unknown]
  - Fatigue [Unknown]
  - Illness [Recovering/Resolving]

NARRATIVE: CASE EVENT DATE: 20211203
